FAERS Safety Report 7754520-2 (Version None)
Quarter: 2011Q3

REPORT INFORMATION
  Report Type: 
  Country: None (occurrence: None)
  Receive Date: 20110915
  Receipt Date: 20110907
  Transmission Date: 20111222
  Serious: Yes (Death)
  Sender: FDA-Public Use
  Company Number: US-CELGENEUS-163-21880-11090798

PATIENT
  Sex: Male

DRUGS (6)
  1. LANTUS [Concomitant]
     Route: 065
  2. DEXAMETHASONE [Concomitant]
     Dosage: 4 MILLIGRAM
     Route: 065
  3. REVLIMID [Suspect]
     Indication: MULTIPLE MYELOMA
     Dosage: 25 MILLIGRAM
     Route: 048
     Dates: start: 20070806, end: 20110524
  4. ALPRAZOLAM [Concomitant]
     Dosage: .5 MILLIGRAM
     Route: 065
  5. ZOMETA [Concomitant]
     Route: 065
  6. DILTIAZEM [Concomitant]
     Dosage: 180 MILLIGRAM
     Route: 065

REACTIONS (1)
  - MULTIPLE MYELOMA [None]
